FAERS Safety Report 7715009-X (Version None)
Quarter: 2011Q3

REPORT INFORMATION
  Report Type: 
  Country: None (occurrence: None)
  Receive Date: 20110829
  Receipt Date: 20110609
  Transmission Date: 20111222
  Serious: No
  Sender: FDA-Public Use
  Company Number: US-ASTRAZENECA-2011SE35554

PATIENT
  Age: 90 Year
  Sex: Female
  Weight: 90.7 kg

DRUGS (3)
  1. VIMOVO [Suspect]
     Indication: OSTEOARTHRITIS
     Dosage: 50MG TWICE DAILY
     Route: 048
     Dates: start: 20110605, end: 20110607
  2. ATENOLOL [Concomitant]
     Indication: BLOOD PRESSURE
  3. VITAMIN TAB [Concomitant]

REACTIONS (3)
  - DIZZINESS [None]
  - VISION BLURRED [None]
  - BRADYCARDIA [None]
